FAERS Safety Report 6751889-2 (Version None)
Quarter: 2010Q2

REPORT INFORMATION
  Report Type: 
  Country: None (occurrence: None)
  Receive Date: 20100602
  Receipt Date: 20100524
  Transmission Date: 20101027
  Serious: Yes (Hospitalization)
  Sender: FDA-Public Use
  Company Number: FI-ASTRAZENECA-2010SE23868

PATIENT
  Age: 3706 Day
  Sex: Female

DRUGS (5)
  1. NEXIUM [Suspect]
     Indication: DYSPEPSIA
     Route: 048
     Dates: start: 20090827, end: 20090831
  2. NEXIUM [Suspect]
     Route: 048
     Dates: start: 20090901, end: 20090901
  3. SOMAC [Concomitant]
     Route: 048
     Dates: start: 20090817, end: 20090827
  4. PRIMPERAN TAB [Concomitant]
     Route: 048
     Dates: start: 20090831, end: 20090901
  5. GEFILUS [Concomitant]
     Route: 048

REACTIONS (3)
  - AGGRESSION [None]
  - FEAR [None]
  - HYPERVENTILATION [None]
